FAERS Safety Report 8594763-1 (Version None)
Quarter: 2012Q3

REPORT INFORMATION
  Report Type: 
  Country: None (occurrence: None)
  Receive Date: 20120801
  Receipt Date: 20120717
  Transmission Date: 20120928
  Serious: Yes (Hospitalization)
  Sender: FDA-Public Use
  Company Number: FK201202087

PATIENT
  Age: 35 Year
  Sex: Female
  Weight: 58 kg

DRUGS (1)
  1. PACLITAXEL [Suspect]
     Indication: OVARIAN CANCER
     Dosage: 270 MG, INTRAVENOUS (NOT OTHERWISE SPECIFIED
     Route: 042
     Dates: start: 20120612

REACTIONS (3)
  - DYSPNOEA [None]
  - ANAPHYLACTIC SHOCK [None]
  - ALTERED STATE OF CONSCIOUSNESS [None]
